FAERS Safety Report 5053850-5 (Version None)
Quarter: 2006Q3

REPORT INFORMATION
  Report Type: 
  Country: None (occurrence: None)
  Receive Date: 20060718
  Receipt Date: 20060712
  Transmission Date: 20061208
  Serious: Yes (Hospitalization)
  Sender: FDA-Public Use
  Company Number: 453722

PATIENT
  Age: 57 Year
  Sex: Female

DRUGS (6)
  1. CARVEDILOL [Suspect]
     Indication: CONGESTIVE CARDIOMYOPATHY
     Dosage: 1.25MG PER DAY
     Route: 048
     Dates: start: 20040117, end: 20040401
  2. ALLOPURINOL [Concomitant]
     Dates: start: 20031208
  3. LASIX [Concomitant]
     Dates: start: 20031208
  4. DIART [Concomitant]
     Dates: start: 20031208
  5. ACARDI [Concomitant]
     Dates: start: 20031208
  6. GASTER D [Concomitant]
     Dates: start: 20031208

REACTIONS (1)
  - CARDIAC FAILURE [None]
